FAERS Safety Report 10151914 (Version 2)
Quarter: 2014Q2

REPORT INFORMATION
  Report Type: Spontaneous
  Country: JP (occurrence: JP)
  Receive Date: 20140505
  Receipt Date: 20140613
  Transmission Date: 20141212
  Serious: Yes (Hospitalization, Other)
  Sender: FDA-Public Use
  Company Number: JP-JNJFOC-20140418627

PATIENT
  Age: 87 Year
  Sex: Female

DRUGS (23)
  1. REMINYL [Suspect]
     Indication: DEMENTIA ALZHEIMER^S TYPE
     Route: 048
     Dates: start: 20140416, end: 20140424
  2. RISPERDAL [Suspect]
     Indication: AGGRESSION
     Route: 048
     Dates: start: 20140416, end: 20140416
  3. RISPERDAL [Suspect]
     Indication: AGGRESSION
     Route: 048
     Dates: start: 20140419, end: 20140422
  4. RISPERDAL [Suspect]
     Indication: DELIRIUM
     Route: 048
     Dates: start: 20140419, end: 20140422
  5. RISPERDAL [Suspect]
     Indication: DELIRIUM
     Route: 048
     Dates: start: 20140416, end: 20140416
  6. RISPERDAL [Suspect]
     Indication: DEMENTIA ALZHEIMER^S TYPE
     Route: 048
     Dates: start: 20140419, end: 20140422
  7. RISPERDAL [Suspect]
     Indication: DEMENTIA ALZHEIMER^S TYPE
     Route: 048
     Dates: start: 20140416, end: 20140416
  8. CALBLOCK [Suspect]
     Indication: PRODUCT USED FOR UNKNOWN INDICATION
     Dosage: 2 MG TO 0.5 MG PER DAY
     Route: 048
     Dates: start: 20140416
  9. VASOLAN [Concomitant]
     Indication: TACHYCARDIA
     Route: 042
     Dates: start: 20140417
  10. VASOLAN [Concomitant]
     Indication: TACHYCARDIA
     Route: 042
     Dates: start: 20140416, end: 20140417
  11. ZOSYN [Concomitant]
     Indication: PNEUMONIA
     Route: 042
     Dates: start: 20140416, end: 20140421
  12. POTASSIUM CHLORIDE [Concomitant]
     Indication: BLOOD POTASSIUM DECREASED
     Route: 041
     Dates: start: 20140420, end: 20140423
  13. WARFARIN [Concomitant]
     Indication: PRODUCT USED FOR UNKNOWN INDICATION
     Dosage: 2 MG TO 0.5 MG PER DAY
     Route: 048
     Dates: start: 20140416
  14. ASPARTATE POTASSIUM [Concomitant]
     Indication: BLOOD POTASSIUM DECREASED
     Route: 048
     Dates: start: 20140421
  15. MAINTATE [Concomitant]
     Indication: PRODUCT USED FOR UNKNOWN INDICATION
     Dosage: 2 MG TO 0.5 MG PER DAY
     Route: 048
     Dates: start: 20140416
  16. KETAS [Concomitant]
     Indication: PRODUCT USED FOR UNKNOWN INDICATION
     Dosage: 2 MG TO 0.5 MG PER DAY
     Route: 048
     Dates: start: 20140416
  17. PLETAAL [Concomitant]
     Indication: PRODUCT USED FOR UNKNOWN INDICATION
     Dosage: 2 MG TO 0.5 MG PER DAY
     Route: 048
     Dates: start: 20140416
  18. ALOSITOL [Concomitant]
     Indication: PRODUCT USED FOR UNKNOWN INDICATION
     Dosage: 2 MG TO 0.5 MG PER DAY
     Route: 048
     Dates: start: 20140416
  19. LIPITOR [Concomitant]
     Indication: PRODUCT USED FOR UNKNOWN INDICATION
     Dosage: 2 MG TO 0.5 MG PER DAY
     Route: 048
     Dates: start: 20140416
  20. OMEPRAL [Concomitant]
     Indication: PRODUCT USED FOR UNKNOWN INDICATION
     Dosage: 2 MG TO 0.5 MG PER DAY
     Route: 065
     Dates: start: 20140416, end: 20140417
  21. MUCOSTA [Concomitant]
     Indication: PRODUCT USED FOR UNKNOWN INDICATION
     Dosage: 2 MG TO 0.5 MG PER DAY
     Route: 065
     Dates: start: 20140418
  22. DIART [Concomitant]
     Indication: PRODUCT USED FOR UNKNOWN INDICATION
     Dosage: 2 MG TO 0.5 MG PER DAY
     Route: 048
     Dates: start: 20140423
  23. CELECOX [Concomitant]
     Indication: PRODUCT USED FOR UNKNOWN INDICATION
     Dosage: 2 MG TO 0.5 MG PER DAY
     Route: 048
     Dates: start: 20140423, end: 20140425

REACTIONS (3)
  - Somnolence [Unknown]
  - Altered state of consciousness [Recovered/Resolved]
  - Off label use [Unknown]
